FAERS Safety Report 9278455 (Version 1)
Quarter: 2013Q2

REPORT INFORMATION
  Report Type: Spontaneous
  Country: US (occurrence: US)
  Receive Date: 20130508
  Receipt Date: 20130508
  Transmission Date: 20140414
  Serious: Yes (Hospitalization, Other)
  Sender: FDA-Public Use
  Company Number: US-009507513-1109USA00244

PATIENT
  Sex: Female
  Weight: 66.45 kg

DRUGS (10)
  1. FOSAMAX [Suspect]
     Indication: OSTEOPOROSIS
     Dosage: 70 MG, QW
     Route: 048
     Dates: start: 20010518
  2. FOSAMAX [Suspect]
     Dosage: UNK MG, QW
     Route: 048
     Dates: start: 20101116
  3. VITAMIN D (UNSPECIFIED) [Concomitant]
     Dates: start: 2006
  4. CALCIUM (UNSPECIFIED) [Concomitant]
     Dates: start: 2006
  5. DITROPAN [Concomitant]
     Dosage: 10 MG, UNK
     Route: 048
  6. ALBUTEROL [Concomitant]
     Dosage: PRN
  7. ACIPHEX [Concomitant]
  8. DARVOCET-N [Concomitant]
     Dosage: UNK UNK, PRN
  9. TYLENOL [Concomitant]
     Dosage: 2 DF, TID
  10. REMERON [Concomitant]
     Indication: HYDROCEPHALUS
     Dosage: 7.5 MG, QD
     Dates: start: 20060601

REACTIONS (46)
  - Femur fracture [Unknown]
  - Femur fracture [Unknown]
  - Intramedullary rod insertion [Unknown]
  - Intramedullary rod insertion [Unknown]
  - Spinal compression fracture [Not Recovered/Not Resolved]
  - Pelvic fracture [Recovered/Resolved]
  - Fall [Unknown]
  - Spinal disorder [Unknown]
  - Spinal compression fracture [Unknown]
  - Fall [Unknown]
  - Patella fracture [Unknown]
  - Gastrointestinal disorder [Unknown]
  - Rib fracture [Unknown]
  - Osteoarthritis [Unknown]
  - Ligament sprain [Unknown]
  - Asthma [Unknown]
  - Meniscus injury [Unknown]
  - Osteoarthritis [Not Recovered/Not Resolved]
  - Spinal disorder [Unknown]
  - Bronchiolitis [Unknown]
  - Cough [Not Recovered/Not Resolved]
  - Anaemia [Unknown]
  - Gastrointestinal disorder [Unknown]
  - Bladder disorder [Unknown]
  - Spinal osteoarthritis [Unknown]
  - Hand fracture [Unknown]
  - Lumbar spinal stenosis [Unknown]
  - Spinal disorder [Not Recovered/Not Resolved]
  - Osteopenia [Not Recovered/Not Resolved]
  - Osteosclerosis [Unknown]
  - Facet joint syndrome [Unknown]
  - Fall [Unknown]
  - Depression [Unknown]
  - Allergic bronchitis [Unknown]
  - Vitamin B12 deficiency [Unknown]
  - Excoriation [Unknown]
  - Fall [Unknown]
  - Soft tissue infection [Unknown]
  - Fall [Unknown]
  - Pubis fracture [Unknown]
  - Pain in extremity [Unknown]
  - Local swelling [Unknown]
  - Arthralgia [Unknown]
  - Arthralgia [Unknown]
  - Back pain [Unknown]
  - Gastrooesophageal reflux disease [Unknown]
